FAERS Safety Report 6998023-1 (Version None)
Quarter: 2010Q3

REPORT INFORMATION
  Report Type: 
  Country: None (occurrence: None)
  Receive Date: 20100920
  Receipt Date: 20091119
  Transmission Date: 20110219
  Serious: Yes (Other)
  Sender: FDA-Public Use
  Company Number: US-ASTRAZENECA-2007UW18067

PATIENT
  Age: 5512 Day
  Sex: Male
  Weight: 132 kg

DRUGS (20)
  1. SEROQUEL [Suspect]
     Indication: SLEEP DISORDER
     Dosage: 100MG-300MG
     Route: 048
     Dates: start: 19980605, end: 20051225
  2. SEROQUEL [Suspect]
     Indication: DEPRESSION
     Dosage: 100MG-300MG
     Route: 048
     Dates: start: 19980605, end: 20051225
  3. SEROQUEL [Suspect]
     Indication: INSOMNIA
     Dosage: 100MG-300MG
     Route: 048
     Dates: start: 19980605, end: 20051225
  4. SEROQUEL [Suspect]
     Dosage: 100-300 MG
     Route: 048
     Dates: start: 19980605, end: 20050901
  5. SEROQUEL [Suspect]
     Dosage: 100-300 MG
     Route: 048
     Dates: start: 19980605, end: 20050901
  6. SEROQUEL [Suspect]
     Dosage: 100-300 MG
     Route: 048
     Dates: start: 19980605, end: 20050901
  7. SEROQUEL [Suspect]
     Dosage: 100-400 MG
     Route: 048
     Dates: start: 19980605
  8. SEROQUEL [Suspect]
     Dosage: 100-400 MG
     Route: 048
     Dates: start: 19980605
  9. SEROQUEL [Suspect]
     Dosage: 100-400 MG
     Route: 048
     Dates: start: 19980605
  10. PREVACID [Concomitant]
     Dosage: 30 DAILY
     Route: 048
     Dates: start: 20011121
  11. CLONIDINE [Concomitant]
     Dates: start: 19980605
  12. NAPROXEN [Concomitant]
     Dates: start: 19980612
  13. ZOLOFT [Concomitant]
     Dates: start: 19980605
  14. TIZANIDINE HCL [Concomitant]
     Dates: start: 20050811
  15. RISPERDAL [Concomitant]
     Indication: DEPRESSION
     Dates: start: 19970717, end: 19980605
  16. RISPERDAL [Concomitant]
     Indication: INSOMNIA
     Dates: start: 19970717, end: 19980605
  17. RISPERDAL [Concomitant]
     Dosage: 2-5 MG DAILY
     Dates: start: 19980803
  18. RISPERDAL [Concomitant]
     Dosage: 2-5 MG DAILY
     Dates: start: 19980803
  19. TRAZODONE HCL [Concomitant]
     Dates: start: 19980803
  20. GLUCOPHAGE [Concomitant]
     Dosage: 500-2000 MG
     Dates: start: 19980803

REACTIONS (4)
  - DIABETES MELLITUS [None]
  - DIABETES MELLITUS INADEQUATE CONTROL [None]
  - TYPE 1 DIABETES MELLITUS [None]
  - TYPE 2 DIABETES MELLITUS [None]
